FAERS Safety Report 5087538-1 (Version None)
Quarter: 2006Q3

REPORT INFORMATION
  Report Type: 
  Country: None (occurrence: None)
  Receive Date: 20060824
  Receipt Date: 20060818
  Transmission Date: 20061208
  Serious: Yes (Hospitalization)
  Sender: FDA-Public Use
  Company Number: FR-GLAXOSMITHKLINE-B0434678A

PATIENT
  Age: 76 Year
  Sex: Male
  Weight: 80 kg

DRUGS (1)
  1. ZOVIRAX [Suspect]
     Route: 042
     Dates: start: 20060630, end: 20060730

REACTIONS (6)
  - DELIRIUM TREMENS [None]
  - DISORIENTATION [None]
  - GAIT DISTURBANCE [None]
  - MUSCULAR WEAKNESS [None]
  - MYOCLONUS [None]
  - SPEECH DISORDER [None]
